FAERS Safety Report 10459513 (Version 5)
Quarter: 2015Q1

REPORT INFORMATION
  Report Type: Report from Study
  Country: US (occurrence: US)
  Receive Date: 20140917
  Receipt Date: 20150226
  Transmission Date: 20150720
  Serious: Yes (Other)
  Sender: FDA-Public Use
  Company Number: US-SA-2014SA072228

PATIENT
  Age: 41 Year
  Sex: Female

DRUGS (2)
  1. AUBAGIO [Suspect]
     Active Substance: TERIFLUNOMIDE
     Indication: MULTIPLE SCLEROSIS
     Route: 048
     Dates: start: 20140524
  2. AUBAGIO [Suspect]
     Active Substance: TERIFLUNOMIDE
     Indication: MULTIPLE SCLEROSIS
     Route: 048

REACTIONS (14)
  - Huntington^s disease [Unknown]
  - Peripheral swelling [Unknown]
  - Amnesia [Unknown]
  - Skin warm [Unknown]
  - Diarrhoea [Unknown]
  - Fatigue [Unknown]
  - Rash erythematous [Unknown]
  - Rash [Unknown]
  - Arthropod bite [Unknown]
  - Infected bites [Unknown]
  - Vitamin B complex deficiency [Unknown]
  - Viral infection [Unknown]
  - Abdominal discomfort [Recovering/Resolving]
  - Conjunctivitis [Unknown]

NARRATIVE: CASE EVENT DATE: 20140524
